FAERS Safety Report 6552826-6 (Version None)
Quarter: 2010Q1

REPORT INFORMATION
  Report Type: 
  Country: None (occurrence: None)
  Receive Date: 20100121
  Receipt Date: 20100114
  Transmission Date: 20100710
  Serious: Yes (Disabling)
  Sender: FDA-Public Use
  Company Number: 2010SP003421

PATIENT

DRUGS (1)
  1. TEMODAL [Suspect]
     Indication: MALIGNANT GLIOMA
     Dosage: 320 MG; ; PO
     Route: 048
     Dates: end: 20100101

REACTIONS (2)
  - BLINDNESS [None]
  - OPTIC NEURITIS [None]
